FAERS Safety Report 4480578-2 (Version None)
Quarter: 2004Q4

REPORT INFORMATION
  Report Type: 
  Country: None (occurrence: None)
  Receive Date: 20041019
  Receipt Date: 20041005
  Transmission Date: 20050328
  Serious: Yes (Life-Threatening)
  Sender: FDA-Public Use
  Company Number: 2004SE04747

PATIENT
  Age: 65 Year
  Sex: Female

DRUGS (13)
  1. BLOPRESS [Suspect]
     Indication: HYPERTENSION
     Dosage: 8 MG QD PO
     Route: 048
     Dates: start: 20040716, end: 20040722
  2. LOXONIN [Suspect]
     Indication: POST PROCEDURAL PAIN
     Dosage: 60 MG PRN PO
     Route: 048
     Dates: start: 20040720, end: 20040722
  3. AMLODIPINE BESYLATE [Concomitant]
  4. BACLOFEN [Concomitant]
  5. BENIDIPINE HYDROCHLORIDE [Concomitant]
  6. CARBAMAZEPINE [Concomitant]
  7. ETIZOLAM [Concomitant]
  8. GLICLAZIDE [Concomitant]
  9. MECOBALAMIN [Concomitant]
  10. MEXILETINE HYDROCHLORIDE [Concomitant]
  11. TEMOCAPRIL HYDROCHLORIDE [Concomitant]
  12. BASEN [Concomitant]
  13. ZOLPIDEM TARTRATE [Concomitant]

REACTIONS (7)
  - DECREASED APPETITE [None]
  - DEPRESSED LEVEL OF CONSCIOUSNESS [None]
  - GENERALISED ERYTHEMA [None]
  - NAUSEA [None]
  - PRURITUS [None]
  - SHOCK [None]
  - VOMITING [None]
